FAERS Safety Report 5122910-2 (Version None)
Quarter: 2006Q4

REPORT INFORMATION
  Report Type: 
  Country: None (occurrence: None)
  Receive Date: 20061009
  Receipt Date: 20060929
  Transmission Date: 20070319
  Serious: Yes (Hospitalization)
  Sender: FDA-Public Use
  Company Number: 2006PK01976

PATIENT
  Age: 11293 Day
  Sex: Male
  Weight: 85 kg

DRUGS (2)
  1. SEROQUEL [Suspect]
     Indication: SCHIZOPHRENIA, PARANOID TYPE
     Route: 048
     Dates: start: 20060822, end: 20060907
  2. SEROQUEL [Suspect]
     Route: 048
     Dates: start: 20060909

REACTIONS (3)
  - DISTURBANCE IN ATTENTION [None]
  - RESTLESSNESS [None]
  - THINKING ABNORMAL [None]
